FAERS Safety Report 21638534 (Version 3)
Quarter: 2025Q2

REPORT INFORMATION
  Report Type: Spontaneous
  Country: SE (occurrence: SE)
  Receive Date: 20221124
  Receipt Date: 20250620
  Transmission Date: 20250717
  Serious: Yes (Hospitalization, Other)
  Sender: BRISTOL-MYERS SQUIBB COMPANY
  Company Number: None

PATIENT
  Age: 69 Year
  Sex: Male

DRUGS (10)
  1. NIVOLUMAB [Suspect]
     Active Substance: NIVOLUMAB
     Indication: Bladder cancer
     Dates: start: 20220929, end: 20220929
  2. PFIZER-BIONTECH COVID-19 VACCINE, BIVALENT [Suspect]
     Active Substance: BNT162B2 OMICRON (BA.4/BA.5)\TOZINAMERAN
     Indication: COVID-19 immunisation
     Dates: start: 20221018, end: 20221018
  3. HEPARIN LEO [HEPARIN SODIUM] [Concomitant]
     Indication: Product used for unknown indication
     Dates: start: 20221026, end: 20221029
  4. AMLODIPINE [Concomitant]
     Active Substance: AMLODIPINE BESYLATE
     Indication: Product used for unknown indication
     Dates: start: 20200226
  5. IOMERON [Concomitant]
     Active Substance: IOMEPROL
     Indication: Product used for unknown indication
     Dates: start: 20221026, end: 20221029
  6. HYDROXOCOBALAMIN ALTERNOVA [Concomitant]
     Indication: Product used for unknown indication
     Dates: start: 20180717
  7. CANDESARTAN [Concomitant]
     Active Substance: CANDESARTAN
     Indication: Product used for unknown indication
     Dates: start: 20180717
  8. XYLOCAINE [Concomitant]
     Active Substance: LIDOCAINE HYDROCHLORIDE
     Indication: Product used for unknown indication
     Dates: start: 20221026, end: 20221029
  9. SOLVEZINK [Concomitant]
     Indication: Product used for unknown indication
     Dates: start: 20180717
  10. CALCIUM CARBONATE\CHOLECALCIFEROL [Concomitant]
     Active Substance: CALCIUM CARBONATE\CHOLECALCIFEROL
     Indication: Product used for unknown indication
     Dates: start: 20220616

REACTIONS (3)
  - Myocarditis [Not Recovered/Not Resolved]
  - Cardiac arrest [Not Recovered/Not Resolved]
  - Atrioventricular block complete [Not Recovered/Not Resolved]

NARRATIVE: CASE EVENT DATE: 20221027
